FAERS Safety Report 6166694-8 (Version None)
Quarter: 2009Q2

REPORT INFORMATION
  Report Type: 
  Country: None (occurrence: None)
  Receive Date: 20090424
  Receipt Date: 20090413
  Transmission Date: 20091009
  Serious: Yes (Other)
  Sender: FDA-Public Use
  Company Number: SE-PFIZER INC-2009197506

PATIENT

DRUGS (4)
  1. XANAX [Suspect]
     Indication: ANXIETY
     Dosage: UNK
     Dates: start: 20020101
  2. TREO COMP [Suspect]
     Indication: ANXIETY DISORDER
     Dosage: UNSPECIFIED, THEN 3 TO 7 TABLETS, DAILY
     Route: 048
     Dates: start: 19810101
  3. ZOLOFT [Concomitant]
     Indication: ANXIETY
     Dosage: 100 MG, UNK
     Route: 048
     Dates: start: 19920101
  4. DIAZEPAM [Concomitant]
     Indication: ANXIETY
     Dosage: UNK
     Dates: start: 19810101

REACTIONS (5)
  - ANXIETY [None]
  - ATTENTION DEFICIT/HYPERACTIVITY DISORDER [None]
  - DEPENDENCE [None]
  - FEELING ABNORMAL [None]
  - POST-TRAUMATIC STRESS DISORDER [None]
